FAERS Safety Report 23801721 (Version 4)
Quarter: 2024Q3

REPORT INFORMATION
  Report Type: Spontaneous
  Country: US (occurrence: US)
  Receive Date: 20240501
  Receipt Date: 20240710
  Transmission Date: 20241016
  Serious: No
  Sender: ROCHE
  Company Number: US-ROCHE-3548831

PATIENT
  Sex: Female

DRUGS (1)
  1. VABYSMO [Suspect]
     Active Substance: FARICIMAB\FARICIMAB-SVOA
     Indication: Product used for unknown indication
     Dosage: RIGHT EYE
     Route: 065
     Dates: start: 20240126

REACTIONS (3)
  - Eye inflammation [Unknown]
  - Cataract [Unknown]
  - Keratic precipitates [Unknown]

NARRATIVE: CASE EVENT DATE: 20240405
